FAERS Safety Report 15979007 (Version 2)
Quarter: 2019Q1

REPORT INFORMATION
  Report Type: Spontaneous
  Country: AT (occurrence: AT)
  Receive Date: 20190219
  Receipt Date: 20190322
  Transmission Date: 20190418
  Serious: Yes (Other)
  Sender: FDA-Public Use
  Company Number: AT-SA-2019SA042709

PATIENT
  Sex: Male
  Weight: 200 kg

DRUGS (6)
  1. TIGECYCLINE. [Suspect]
     Active Substance: TIGECYCLINE
  2. SULBACTAM [Suspect]
     Active Substance: SULBACTAM
  3. RIFOLDIN [Suspect]
     Active Substance: RIFAMPIN
     Route: 042
  4. CUBICIN [Suspect]
     Active Substance: DAPTOMYCIN
  5. AZITHROMYCIN ANHYDROUS. [Suspect]
     Active Substance: AZITHROMYCIN ANHYDROUS
  6. COLISTIN SULFATE [Suspect]
     Active Substance: COLISTIN SULFATE

REACTIONS (5)
  - Infection [Unknown]
  - Candida infection [Unknown]
  - C-reactive protein increased [Unknown]
  - Drug ineffective [Unknown]
  - Anuria [Unknown]
